FAERS Safety Report 4618962-6 (Version None)
Quarter: 2005Q1

REPORT INFORMATION
  Report Type: 
  Country: None (occurrence: None)
  Receive Date: 20050325
  Receipt Date: 20050314
  Transmission Date: 20050727
  Serious: Yes (Hospitalization)
  Sender: FDA-Public Use
  Company Number: US-JNJFOC-20050104359

PATIENT
  Sex: Male
  Weight: 65.77 kg

DRUGS (14)
  1. REMICADE [Suspect]
     Route: 042
  2. REMICADE [Suspect]
     Indication: CROHN'S DISEASE
     Route: 042
  3. ASACOL [Concomitant]
  4. PENTASA [Concomitant]
  5. PREDNISONE [Concomitant]
  6. HYDROCODONE BITARTRATE [Concomitant]
  7. HYDROCODONE BITARTRATE [Concomitant]
     Indication: ABSCESS
     Dosage: OFF AND ON FOR 7 YEARS
  8. ENTOCORT [Concomitant]
     Indication: CROHN'S DISEASE
  9. DIAZEPAM [Concomitant]
  10. DIAZEPAM [Concomitant]
  11. ALLEGRA [Concomitant]
  12. FOLLISTIM [Concomitant]
     Indication: DEPRESSION
  13. PREVACID [Concomitant]
  14. SOMA [Concomitant]

REACTIONS (4)
  - ARTHRALGIA [None]
  - PHARYNGITIS STREPTOCOCCAL [None]
  - STREPTOCOCCAL INFECTION [None]
  - WHITE BLOOD CELL COUNT INCREASED [None]
